FAERS Safety Report 8347478-9 (Version None)
Quarter: 2012Q2

REPORT INFORMATION
  Report Type: 
  Country: None (occurrence: None)
  Receive Date: 20120509
  Receipt Date: 20120501
  Transmission Date: 20120825
  Serious: Yes (Hospitalization)
  Sender: FDA-Public Use
  Company Number: US-NOVOPROD-350850

PATIENT
  Age: 4 Year
  Sex: Male
  Weight: 18.141 kg

DRUGS (1)
  1. NORDITROPIN FLEXPRO [Suspect]
     Indication: BODY HEIGHT BELOW NORMAL
     Dosage: 1.0 MG, QD
     Route: 058
     Dates: start: 20111201

REACTIONS (3)
  - BRONCHITIS [None]
  - PERICARDIAL EFFUSION [None]
  - RASH GENERALISED [None]
